FAERS Safety Report 6431415-8 (Version None)
Quarter: 2009Q4

REPORT INFORMATION
  Report Type: 
  Country: None (occurrence: None)
  Receive Date: 20091106
  Receipt Date: 20091102
  Transmission Date: 20100525
  Serious: Yes (Other)
  Sender: FDA-Public Use
  Company Number: PHHY2009DE47692

PATIENT
  Sex: Female
  Weight: 66 kg

DRUGS (1)
  1. CGS 20267 T30748+ [Suspect]
     Indication: BREAST CANCER
     Dosage: 2.5 MG, QD
     Route: 048
     Dates: start: 20090209

REACTIONS (4)
  - ARTHRALGIA [None]
  - DEPRESSION [None]
  - HYPERTENSION [None]
  - VAGINAL INFECTION [None]
